FAERS Safety Report 7421303-2 (Version None)
Quarter: 2011Q2

REPORT INFORMATION
  Report Type: 
  Country: None (occurrence: None)
  Receive Date: 20110418
  Receipt Date: 20110413
  Transmission Date: 20111010
  Serious: Yes (Other)
  Sender: FDA-Public Use
  Company Number: GB-TEVA-276910ISR

PATIENT
  Sex: Female

DRUGS (3)
  1. BEVACIZUMAB [Suspect]
  2. OXALIPLATIN [Suspect]
  3. CAPECITABINE [Suspect]

REACTIONS (1)
  - CARDIAC DISORDER [None]
